FAERS Safety Report 8482379-7 (Version None)
Quarter: 2012Q3

REPORT INFORMATION
  Report Type: 
  Country: None (occurrence: None)
  Receive Date: 20120702
  Receipt Date: 20120622
  Transmission Date: 20120928
  Serious: Yes (Other)
  Sender: FDA-Public Use
  Company Number: US-JNJFOC-20120611941

PATIENT
  Sex: Female
  Weight: 63.96 kg

DRUGS (3)
  1. NUBAIN [Concomitant]
     Indication: PAIN
     Dosage: 40 (UNIT UNSPECIFIED)
     Route: 065
     Dates: start: 19950101, end: 19950101
  2. VISTARIL [Concomitant]
     Indication: PAIN
     Dosage: 20 (UNIT UNSPECIFIED)
     Route: 065
     Dates: start: 19950101, end: 19950101
  3. ELMIRON [Suspect]
     Indication: CYSTITIS INTERSTITIAL
     Route: 048
     Dates: start: 19950801, end: 19950901

REACTIONS (6)
  - FATIGUE [None]
  - ASTHENIA [None]
  - CONVULSION [None]
  - VOMITING [None]
  - ALOPECIA [None]
  - DRUG INEFFECTIVE [None]
